FAERS Safety Report 6418729-2 (Version None)
Quarter: 2009Q4

REPORT INFORMATION
  Report Type: 
  Country: None (occurrence: None)
  Receive Date: 20091026
  Receipt Date: 20091014
  Transmission Date: 20100525
  Serious: Yes (Death, Hospitalization)
  Sender: FDA-Public Use
  Company Number: 2009AC000225

PATIENT
  Age: 56 Year
  Sex: Female

DRUGS (29)
  1. DIGOXIN [Suspect]
     Dosage: 0.25 MG;QD;PO
     Route: 048
     Dates: start: 20050201
  2. DIGOXIN [Suspect]
     Dosage: 0.125 MG;QD
     Dates: start: 20050201
  3. ASPIRIN [Concomitant]
  4. LEVAQUIN [Concomitant]
  5. DOXY HYCLATE [Concomitant]
  6. METRONIDAZOLE [Concomitant]
  7. NEXIUM [Concomitant]
  8. ACETAMINOPHEN [Concomitant]
  9. SEREVENT [Concomitant]
  10. ZITHROMAX [Concomitant]
  11. GUAIFENESIN [Concomitant]
  12. ALBUTEROL [Concomitant]
  13. KETOCONAZOLE [Concomitant]
  14. LORAZEPAM [Concomitant]
  15. PROPOXYPHENE HCL AND ACETAMINOPHEN [Concomitant]
  16. OXYCODONE HCL AND ACETAMINOPHEN [Concomitant]
  17. LIPITOR [Concomitant]
  18. BUMEX [Concomitant]
  19. INSULIN [Concomitant]
  20. METFORMIN HCL [Concomitant]
  21. SPIRIVA [Concomitant]
  22. LEVAQUIN [Concomitant]
  23. AVANDIA [Concomitant]
  24. NIFEDIPINE [Concomitant]
  25. AMBIEN [Concomitant]
  26. CORDARONE [Concomitant]
  27. POTASSIUM CHLORIDE [Concomitant]
  28. ALDACTONE [Concomitant]
  29. AMIODARONE HCL [Concomitant]

REACTIONS (26)
  - ASTHENIA [None]
  - ASTHMA [None]
  - ATRIAL FIBRILLATION [None]
  - BRONCHITIS [None]
  - CARDIAC FAILURE CONGESTIVE [None]
  - CHRONIC SINUSITIS [None]
  - CONDITION AGGRAVATED [None]
  - CONFUSIONAL STATE [None]
  - CORONARY ARTERY DISEASE [None]
  - DIABETES MELLITUS [None]
  - DIARRHOEA [None]
  - ECONOMIC PROBLEM [None]
  - GENERALISED OEDEMA [None]
  - GOUT [None]
  - INJURY [None]
  - INTERNATIONAL NORMALISED RATIO INCREASED [None]
  - LEFT VENTRICULAR HYPERTROPHY [None]
  - MITRAL VALVE INCOMPETENCE [None]
  - NAUSEA [None]
  - PNEUMONIA [None]
  - RENAL FAILURE [None]
  - TRANSIENT ISCHAEMIC ATTACK [None]
  - ULCER [None]
  - URINARY TRACT INFECTION [None]
  - VENTRICULAR TACHYCARDIA [None]
  - VOMITING [None]
